FAERS Safety Report 6207311-8 (Version None)
Quarter: 2009Q2

REPORT INFORMATION
  Report Type: 
  Country: None (occurrence: None)
  Receive Date: 20090528
  Receipt Date: 20090522
  Transmission Date: 20091009
  Serious: Yes (Other)
  Sender: FDA-Public Use
  Company Number: FR-ABBOTT-09P-056-0575131-00

PATIENT
  Age: 30 Year
  Sex: Male

DRUGS (6)
  1. SEVOFLURANE [Suspect]
     Indication: INDUCTION OF ANAESTHESIA
     Route: 055
  2. ALFENTANIL [Interacting]
     Indication: DRUG USE FOR UNKNOWN INDICATION
  3. VALPROATE SODIUM [Concomitant]
     Indication: ENCEPHALOPATHY
     Dosage: NOT REPORTED
  4. LAMOTRIGINE [Concomitant]
     Indication: ENCEPHALOPATHY
     Dosage: NOT REPORTED
  5. CITALOPRAM HYDROBROMIDE [Concomitant]
     Indication: ENCEPHALOPATHY
     Dosage: NOT REPORTED
  6. NITROUS OXIDE [Concomitant]
     Indication: INDUCTION OF ANAESTHESIA

REACTIONS (3)
  - BRADYCARDIA [None]
  - CARDIAC ARREST [None]
  - DRUG INTERACTION [None]
